FAERS Safety Report 13371455 (Version 2)
Quarter: 2017Q2

REPORT INFORMATION
  Report Type: Spontaneous
  Country: US (occurrence: US)
  Receive Date: 20170324
  Receipt Date: 20170406
  Transmission Date: 20170830
  Serious: Yes (Other)
  Sender: FDA-Public Use
  Company Number: US-JAZZ-2017-US-003656

PATIENT
  Sex: Female

DRUGS (3)
  1. PENICILLIN [Suspect]
     Active Substance: PENICILLIN
     Indication: SINUSITIS
  2. XYREM [Suspect]
     Active Substance: SODIUM OXYBATE
     Indication: NARCOLEPSY
     Dosage: 3 G, BID
     Route: 048
     Dates: start: 201010, end: 2010
  3. XYREM [Suspect]
     Active Substance: SODIUM OXYBATE
     Dosage: 4.5 G, BID
     Route: 048
     Dates: start: 201011

REACTIONS (2)
  - Sinusitis [Unknown]
  - Drug hypersensitivity [Not Recovered/Not Resolved]
